FAERS Safety Report 7592257-3 (Version None)
Quarter: 2011Q3

REPORT INFORMATION
  Report Type: 
  Country: None (occurrence: None)
  Receive Date: 20110706
  Receipt Date: 20110621
  Transmission Date: 20111222
  Serious: Yes (Disabling)
  Sender: FDA-Public Use
  Company Number: PT-JNJFOC-20100706280

PATIENT
  Age: 45 Year
  Sex: Male

DRUGS (4)
  1. REMICADE [Suspect]
     Route: 042
     Dates: start: 20080101
  2. REMICADE [Suspect]
     Indication: CROHN'S DISEASE
     Route: 042
     Dates: start: 20060101
  3. REMICADE [Suspect]
     Route: 042
  4. REMICADE [Suspect]
     Route: 042
     Dates: end: 20100701

REACTIONS (6)
  - HYPOKINESIA [None]
  - SMALL INTESTINAL OBSTRUCTION [None]
  - SMALL INTESTINAL STENOSIS [None]
  - FATIGUE [None]
  - ANAEMIA [None]
  - MUSCLE DISORDER [None]
